FAERS Safety Report 8463975-X (Version None)
Quarter: 2012Q2

REPORT INFORMATION
  Report Type: 
  Country: None (occurrence: None)
  Receive Date: 20120625
  Receipt Date: 20120616
  Transmission Date: 20120825
  Serious: Yes (Hospitalization)
  Sender: FDA-Public Use
  Company Number: IT-JNJFOC-20120407544

PATIENT
  Sex: Male

DRUGS (14)
  1. LEVOMEPROMAZINE [Concomitant]
     Dates: start: 20120328
  2. LEVOMEPROMAZINE [Concomitant]
     Dates: start: 20120312
  3. LEVOMEPROMAZINE [Concomitant]
     Dates: start: 20120330
  4. LEVOMEPROMAZINE [Concomitant]
     Dates: start: 20120327
  5. LEVOMEPROMAZINE [Concomitant]
     Dates: start: 20120330
  6. LEVOMEPROMAZINE [Concomitant]
     Dates: start: 20120328
  7. CHLORDESMETHYLDIAZEPAM [Concomitant]
     Dates: start: 20120312
  8. LEVOMEPROMAZINE [Concomitant]
     Indication: INSOMNIA
     Dates: start: 20120404
  9. LEVOMEPROMAZINE [Concomitant]
     Dates: start: 20120327
  10. LEVOMEPROMAZINE [Concomitant]
     Dates: start: 20120404
  11. PALIPERIDONE [Suspect]
     Indication: SCHIZOPHRENIA
     Route: 030
     Dates: start: 20111128
  12. CHLORDESMETHYLDIAZEPAM [Concomitant]
     Indication: TENSION
     Dates: start: 20120404
  13. LEVOMEPROMAZINE [Concomitant]
     Indication: TENSION
     Dates: start: 20120312
  14. PALIPERIDONE [Suspect]
     Route: 030
     Dates: start: 20120328

REACTIONS (1)
  - PSYCHOTIC DISORDER [None]
